FAERS Safety Report 5825765-3 (Version None)
Quarter: 2008Q3

REPORT INFORMATION
  Report Type: 
  Country: None (occurrence: None)
  Receive Date: 20080728
  Receipt Date: 20080728
  Transmission Date: 20090109
  Serious: No
  Sender: FDA-Public Use
  Company Number: None

PATIENT
  Age: 25 Year
  Sex: Female
  Weight: 73.4827 kg

DRUGS (1)
  1. MIRENA [Suspect]

REACTIONS (12)
  - ABDOMINAL PAIN UPPER [None]
  - ADNEXA UTERI PAIN [None]
  - ANHEDONIA [None]
  - FEELING ABNORMAL [None]
  - HAEMORRHAGE [None]
  - LOSS OF LIBIDO [None]
  - MUSCLE SPASMS [None]
  - PAIN [None]
  - SEXUAL DYSFUNCTION [None]
  - STOMACH DISCOMFORT [None]
  - VAGINAL PAIN [None]
  - VULVOVAGINAL DISCOMFORT [None]
